FAERS Safety Report 7812675-5 (Version None)
Quarter: 2011Q4

REPORT INFORMATION
  Report Type: 
  Country: None (occurrence: None)
  Receive Date: 20111013
  Receipt Date: 20110929
  Transmission Date: 20120403
  Serious: Yes (Hospitalization, Other)
  Sender: FDA-Public Use
  Company Number: US-ELI_LILLY_AND_COMPANY-US201110000694

PATIENT
  Age: 30 Year
  Sex: Female

DRUGS (3)
  1. STRATTERA [Suspect]
     Indication: ATTENTION DEFICIT/HYPERACTIVITY DISORDER
     Dosage: 60 MG, EACH MORNING
     Dates: start: 20070101
  2. STRATTERA [Suspect]
     Dosage: 40 MG, EACH EVENING
     Dates: start: 20070101
  3. DIOVAN [Concomitant]
     Indication: HYPERTENSION

REACTIONS (1)
  - SUPRAVENTRICULAR TACHYCARDIA [None]
